FAERS Safety Report 23039569 (Version 1)
Quarter: 2023Q4

REPORT INFORMATION
  Report Type: Spontaneous
  Country: NL (occurrence: NL)
  Receive Date: 20231006
  Receipt Date: 20231006
  Transmission Date: 20240109
  Serious: Yes (Congenital Anomaly, Other)
  Sender: FDA-Public Use
  Company Number: None

PATIENT
  Age: 2 Day
  Sex: Female

DRUGS (1)
  1. QUETIAPINE [Suspect]
     Active Substance: QUETIAPINE
     Indication: Anxiety
     Dosage: 1D2, QUETIAPINE TABLET FO  25MG / BRAND NAME NOT SPECIFIED
     Dates: start: 20230506

REACTIONS (2)
  - Newborn persistent pulmonary hypertension [Recovered/Resolved]
  - Maternal exposure during pregnancy [Unknown]
